FAERS Safety Report 20849990 (Version 1)
Quarter: 2022Q2

REPORT INFORMATION
  Report Type: Spontaneous
  Country: US (occurrence: None)
  Receive Date: 20220518
  Receipt Date: 20220518
  Transmission Date: 20220720
  Serious: No
  Sender: FDA-Public Use
  Company Number: None

PATIENT
  Age: 57 Year
  Sex: Female
  Weight: 67.13 kg

DRUGS (1)
  1. ADVIL PM [Suspect]
     Active Substance: DIPHENHYDRAMINE CITRATE\IBUPROFEN
     Dosage: OTHER FREQUENCY : NIGHTLY;?

REACTIONS (13)
  - Dizziness [None]
  - Abdominal distension [None]
  - Abdominal discomfort [None]
  - Headache [None]
  - Tremor [None]
  - Asthenopia [None]
  - Metamorphopsia [None]
  - Fatigue [None]
  - Tremor [None]
  - Heart rate increased [None]
  - Vomiting [None]
  - Decreased appetite [None]
  - Product dosage form issue [None]

NARRATIVE: CASE EVENT DATE: 20200615
